FAERS Safety Report 9676898 (Version 1)
Quarter: 2013Q4

REPORT INFORMATION
  Report Type: Report from Study
  Country: CN (occurrence: CN)
  Receive Date: 20131107
  Receipt Date: 20131107
  Transmission Date: 20140711
  Serious: Yes (Other)
  Sender: FDA-Public Use
  Company Number: CN-ROCHE-1299641

PATIENT
  Sex: 0

DRUGS (3)
  1. CAPECITABINE [Suspect]
     Indication: METASTATIC GASTRIC CANCER
     Dosage: THIS MEDICATION WAS ADMINISTERED ALONG WITH DOCETAXEL AND OXALIPLATIN AND THIS REGIMEN WAS REPEATED
     Route: 048
  2. DOCETAXEL [Suspect]
     Indication: METASTATIC GASTRIC CANCER
     Dosage: THIS MEDICATION WAS ADMINISTERED ALONG WITH CAPECITABIEN AND OXALIPLATIN AND THIS REGIMEN WAS REPEAT
     Route: 042
  3. OXALIPLATIN [Suspect]
     Indication: METASTATIC GASTRIC CANCER
     Dosage: THIS MEDICATION WAS ADMINISTERED ALONG WITH CAPECITABIEN AND DOCETAXEL AND THIS REGIMEN WAS REPEATED
     Route: 042

REACTIONS (10)
  - Palmar-plantar erythrodysaesthesia syndrome [Unknown]
  - Leukopenia [Unknown]
  - Neutropenia [Unknown]
  - Febrile neutropenia [Unknown]
  - Nausea [Unknown]
  - Vomiting [Unknown]
  - Decreased appetite [Unknown]
  - Diarrhoea [Unknown]
  - Fatigue [Unknown]
  - Neurotoxicity [Unknown]
